FAERS Safety Report 5909127-6 (Version None)
Quarter: 2008Q4

REPORT INFORMATION
  Report Type: 
  Country: None (occurrence: None)
  Receive Date: 20081006
  Receipt Date: 20080926
  Transmission Date: 20090506
  Serious: Yes (Hospitalization)
  Sender: FDA-Public Use
  Company Number: US-ABBOTT-08P-163-0464656-00

PATIENT
  Sex: Female
  Weight: 64.922 kg

DRUGS (6)
  1. SYNTHROID [Suspect]
     Indication: HYPOTHYROIDISM
     Route: 048
     Dates: end: 20080801
  2. SYNTHROID [Suspect]
     Dates: start: 20080801
  3. OLMESARTAN MEDOXOMIL [Suspect]
     Indication: HYPERTENSION
  4. OLMESARTAN MEDOXOMIL [Suspect]
     Dates: start: 20080904, end: 20080918
  5. BUDESONIDE [Concomitant]
     Indication: INFLAMMATION
     Route: 048
     Dates: start: 20080701
  6. BUDESONIDE [Concomitant]
     Indication: COELIAC DISEASE

REACTIONS (7)
  - COELIAC DISEASE [None]
  - COLITIS [None]
  - DEHYDRATION [None]
  - DIARRHOEA [None]
  - NAUSEA [None]
  - RENAL DISORDER [None]
  - WEIGHT DECREASED [None]
